FAERS Safety Report 4517903-X (Version None)
Quarter: 2004Q4

REPORT INFORMATION
  Report Type: 
  Country: None (occurrence: None)
  Receive Date: 20041130
  Receipt Date: 20041112
  Transmission Date: 20050328
  Serious: No
  Sender: FDA-Public Use
  Company Number: 9307

PATIENT
  Sex: 0

DRUGS (3)
  1. LEUCOVORIN [Suspect]
     Indication: METASTASES TO LIVER
     Dosage: 300 MG WEEKLY, IA
     Route: 013
  2. FLUOROURACIL [Suspect]
     Indication: COLON CANCER
     Dosage: 1000 MG WEEKLY; IA
     Route: 013
  3. FLUOROURACIL [Suspect]
     Indication: METASTASES TO LIVER
     Dosage: 1000 MG WEEKLY; IA
     Route: 013

REACTIONS (1)
  - CHOLECYSTITIS [None]
